FAERS Safety Report 13826841 (Version 1)
Quarter: 2017Q3

REPORT INFORMATION
  Report Type: Spontaneous
  Country: US (occurrence: US)
  Receive Date: 20170802
  Receipt Date: 20170802
  Transmission Date: 20171127
  Serious: No
  Sender: FDA-Public Use
  Company Number: US-ROCHE-651684

PATIENT
  Age: 62 Year
  Sex: Female

DRUGS (4)
  1. BONIVA [Suspect]
     Active Substance: IBANDRONATE SODIUM
     Indication: OSTEOPENIA
     Route: 048
  2. CLARINEX [Concomitant]
     Active Substance: DESLORATADINE
     Route: 065
  3. RHINOCORT [Concomitant]
     Active Substance: BUDESONIDE
     Route: 065
  4. MELOXICAM. [Concomitant]
     Active Substance: MELOXICAM
     Route: 065

REACTIONS (3)
  - Temporomandibular joint syndrome [Unknown]
  - Arthralgia [Unknown]
  - Tooth fracture [Unknown]
